FAERS Safety Report 23569993 (Version 1)
Quarter: 2024Q1

REPORT INFORMATION
  Report Type: Spontaneous
  Country: GB (occurrence: GB)
  Receive Date: 20240227
  Receipt Date: 20240227
  Transmission Date: 20240410
  Serious: No
  Sender: FDA-Public Use
  Company Number: GB-UCBSA-2024009685

PATIENT
  Sex: Female

DRUGS (18)
  1. LACOSAMIDE [Suspect]
     Active Substance: LACOSAMIDE
     Indication: Seizure
     Dosage: 200 MG IN 100 ML NORMAL SALINE OVER 2 HOURS AS A SHORT SUBCUTANEOUS INFUSION
     Route: 058
     Dates: start: 20221104
  2. LACOSAMIDE [Suspect]
     Active Substance: LACOSAMIDE
     Dosage: 100 MILLIGRAM, 2X/DAY (BID); 100 MG IN 100 ML NORMAL SALINE OVER 2 HOURS TWICE DAILY.
     Route: 058
     Dates: start: 20221105
  3. LEVETIRACETAM [Suspect]
     Active Substance: LEVETIRACETAM
     Indication: Partial seizures
     Dosage: UNK
     Route: 048
  4. LEVETIRACETAM [Suspect]
     Active Substance: LEVETIRACETAM
     Indication: Seizure
     Dosage: 1 GRAM PER 24 HOURS, CONTINUOUS 24 HOUR SUBCUTANEOUS INFUSION
     Route: 058
     Dates: start: 2022
  5. LEVETIRACETAM [Suspect]
     Active Substance: LEVETIRACETAM
     Dosage: 1.5 GRAM PER 24 HOURS, CONTINUOUS 24 HOUR SUBCUTANEOUS INFUSION
     Route: 058
     Dates: start: 20221103
  6. LEVETIRACETAM [Suspect]
     Active Substance: LEVETIRACETAM
     Indication: Status epilepticus
     Dosage: UNK
     Route: 042
     Dates: start: 202210
  7. LEVETIRACETAM [Suspect]
     Active Substance: LEVETIRACETAM
     Indication: Off label use
  8. CARBAMAZEPINE [Suspect]
     Active Substance: CARBAMAZEPINE
     Indication: Partial seizures
     Dosage: UNK
     Route: 048
  9. PHENYTOIN [Suspect]
     Active Substance: PHENYTOIN
     Indication: Partial seizures
     Dosage: UNK
     Route: 048
  10. PHENYTOIN [Suspect]
     Active Substance: PHENYTOIN
     Indication: Status epilepticus
     Dosage: UNK, LOADING DOSE
     Route: 042
     Dates: start: 202210
  11. CLOBAZAM [Suspect]
     Active Substance: CLOBAZAM
     Indication: Partial seizures
     Dosage: UNK
     Route: 048
  12. TOPIRAMATE [Suspect]
     Active Substance: TOPIRAMATE
     Indication: Partial seizures
     Dosage: UNK
     Route: 048
  13. LORAZEPAM [Suspect]
     Active Substance: LORAZEPAM
     Indication: Status epilepticus
     Dosage: UNK
     Route: 042
     Dates: start: 202210
  14. MIDAZOLAM [Suspect]
     Active Substance: MIDAZOLAM
     Indication: Seizure
     Dosage: 40 MILLIGRAM, CONTINUOUS 24-HOUR SUBCUTANEOUS INFUSION (CSCI)
     Route: 058
     Dates: start: 2022
  15. MIDAZOLAM [Suspect]
     Active Substance: MIDAZOLAM
     Dosage: 50 MILLIGRAM EVERY 24 HOURS, CONTINUOUS 24-HOUR SUBCUTANEOUS INFUSION (CSCI)
     Route: 058
     Dates: start: 2022
  16. MIDAZOLAM [Suspect]
     Active Substance: MIDAZOLAM
     Dosage: 40 MILLIGRAM EVERY 24 HOURS, CONTINUOUS 24-HOUR SUBCUTANEOUS INFUSION (CSCI)
     Route: 058
     Dates: start: 2022
  17. MORPHINE SULFATE [Concomitant]
     Active Substance: MORPHINE SULFATE
     Indication: Product used for unknown indication
     Dosage: 10 MILLIGRAM,CONTINUOUS 24-HOUR SUBCUTANEOUS INFUSION (CSCI) OF MORPHINE SULPHATE 10 MG
     Route: 058
     Dates: start: 2022
  18. MORPHINE SULFATE [Concomitant]
     Active Substance: MORPHINE SULFATE
     Dosage: 5 MILLIGRAM EVERY 24 HOURS,CONTINUOUS 24-HOUR SUBCUTANEOUS INFUSION (CSCI) OF MORPHINE SULPHATE 10 M
     Dates: start: 2022

REACTIONS (2)
  - Multiple-drug resistance [Unknown]
  - Off label use [Unknown]

NARRATIVE: CASE EVENT DATE: 20221001
